FAERS Safety Report 12254159 (Version 1)
Quarter: 2016Q2

REPORT INFORMATION
  Report Type: Spontaneous
  Country: US (occurrence: US)
  Receive Date: 20160411
  Receipt Date: 20160411
  Transmission Date: 20160815
  Serious: No
  Sender: FDA-Public Use
  Company Number: US-BAYER-2016-061801

PATIENT
  Age: 70 Year
  Sex: Female
  Weight: 61.22 kg

DRUGS (4)
  1. BAYER WOMENS [Suspect]
     Active Substance: ASPIRIN\CALCIUM CARBONATE
     Indication: ISCHAEMIC HEART DISEASE PROPHYLAXIS
  2. MICROGENICS PROBIOTIC 8 [Concomitant]
  3. FISH OIL [Concomitant]
     Active Substance: FISH OIL
  4. MIRALAX [Suspect]
     Active Substance: POLYETHYLENE GLYCOL 3350
     Indication: CONSTIPATION PROPHYLAXIS
     Dosage: 1 DF, QD
     Route: 048
     Dates: start: 2015

REACTIONS (2)
  - Product contamination [None]
  - Product use issue [None]
